FAERS Safety Report 18344453 (Version 1)
Quarter: 2020Q4

REPORT INFORMATION
  Report Type: Report from Study
  Country: BR (occurrence: BR)
  Receive Date: 20201005
  Receipt Date: 20201005
  Transmission Date: 20210114
  Serious: Yes (Other)
  Sender: FDA-Public Use
  Company Number: NVSC2020BR267282

PATIENT
  Age: 29 Year
  Sex: Female

DRUGS (1)
  1. PIDEZOT [Suspect]
     Active Substance: ZOLPIDEM TARTRATE
     Indication: PRODUCT USED FOR UNKNOWN INDICATION
     Dosage: UNK (STARTED 2 MONTHS AGO) (10)
     Route: 065

REACTIONS (4)
  - Visual impairment [Unknown]
  - Deafness [Unknown]
  - Memory impairment [Unknown]
  - Mydriasis [Unknown]

NARRATIVE: CASE EVENT DATE: 20200923
